FAERS Safety Report 14172597 (Version 4)
Quarter: 2018Q1

REPORT INFORMATION
  Report Type: Spontaneous
  Country: GB (occurrence: GB)
  Receive Date: 20171109
  Receipt Date: 20180309
  Transmission Date: 20180508
  Serious: Yes (Other)
  Sender: FDA-Public Use
  Company Number: GB-AUROBINDO-AUR-APL-2017-43434

PATIENT
  Age: 34 Year
  Sex: Male
  Weight: 91 kg

DRUGS (3)
  1. CETIRIZINE FILM COATED TABLET [Suspect]
     Active Substance: CETIRIZINE HYDROCHLORIDE
     Indication: SEASONAL ALLERGY
     Dosage: 10 MG, ONCE A DAY
     Route: 048
     Dates: start: 20170501, end: 2017
  2. LORATADINE. [Concomitant]
     Active Substance: LORATADINE
     Dosage: ()
     Route: 065
  3. LORATADINE. [Concomitant]
     Active Substance: LORATADINE
     Indication: PRURITUS GENERALISED
     Dosage: UNK ()
     Dates: start: 2016

REACTIONS (2)
  - Withdrawal syndrome [Unknown]
  - Pruritus generalised [Not Recovered/Not Resolved]

NARRATIVE: CASE EVENT DATE: 20160901
